FAERS Safety Report 25368667 (Version 1)
Quarter: 2025Q2

REPORT INFORMATION
  Report Type: Spontaneous
  Country: BR (occurrence: BR)
  Receive Date: 20250528
  Receipt Date: 20250528
  Transmission Date: 20250716
  Serious: Yes (Hospitalization)
  Sender: BIOGEN
  Company Number: BR-BIOGEN-2025BI01312183

PATIENT
  Age: 22 Year
  Sex: Male
  Weight: 92 kg

DRUGS (1)
  1. TECFIDERA [Suspect]
     Active Substance: DIMETHYL FUMARATE
     Indication: Multiple sclerosis
     Route: 050
     Dates: start: 202405

REACTIONS (2)
  - Multiple sclerosis relapse [Recovered/Resolved with Sequelae]
  - Treatment failure [Recovered/Resolved with Sequelae]

NARRATIVE: CASE EVENT DATE: 20250301
